FAERS Safety Report 12142240 (Version 2)
Quarter: 2016Q1

REPORT INFORMATION
  Report Type: Spontaneous
  Country: US (occurrence: US)
  Receive Date: 20160303
  Receipt Date: 20160321
  Transmission Date: 20160526
  Serious: No
  Sender: FDA-Public Use
  Company Number: US-BAYER-2016-042300

PATIENT
  Age: 28 Year
  Sex: Male
  Weight: 90.7 kg

DRUGS (1)
  1. ALEVE [Suspect]
     Active Substance: NAPROXEN SODIUM
     Indication: BACK PAIN
     Dosage: 4 DF, ONCE
     Dates: start: 20160302

REACTIONS (2)
  - Product use issue [None]
  - Gastric disorder [None]

NARRATIVE: CASE EVENT DATE: 20160302
